FAERS Safety Report 20345863 (Version 1)
Quarter: 2022Q1

REPORT INFORMATION
  Report Type: Spontaneous
  Country: US (occurrence: US)
  Receive Date: 20220118
  Receipt Date: 20220118
  Transmission Date: 20220423
  Serious: No
  Sender: FDA-Public Use
  Company Number: US-BioDelivery Sciences International-2021BDSI0497

PATIENT
  Sex: Female
  Weight: 53.572 kg

DRUGS (12)
  1. BUPRENORPHINE [Suspect]
     Active Substance: BUPRENORPHINE
     Indication: Pain
     Route: 002
     Dates: start: 20210227, end: 202106
  2. BUPRENORPHINE [Suspect]
     Active Substance: BUPRENORPHINE
     Dosage: CUTTING 900 MCG FILM IN 3 PIECES AND USING 2 PIECES; TWICE A DAY
     Route: 002
     Dates: start: 202106, end: 202106
  3. BUPRENORPHINE [Suspect]
     Active Substance: BUPRENORPHINE
     Dosage: CUTTING 900 MCG FILM IN 3 PIECES AND USING 2 PIECES; TWICE A DAY
     Route: 002
     Dates: start: 202106, end: 20210630
  4. BUPRENORPHINE [Suspect]
     Active Substance: BUPRENORPHINE
     Route: 002
     Dates: start: 20210701, end: 20210906
  5. BUPRENORPHINE [Suspect]
     Active Substance: BUPRENORPHINE
     Route: 002
     Dates: start: 20210907
  6. BUPRENORPHINE [Suspect]
     Active Substance: BUPRENORPHINE
  7. GABAPENTIN [Concomitant]
     Active Substance: GABAPENTIN
     Indication: Product used for unknown indication
     Route: 048
     Dates: start: 2018
  8. BUSPIRONE [Concomitant]
     Active Substance: BUSPIRONE HYDROCHLORIDE
     Indication: Anxiety
     Route: 065
  9. SIMVASTATIN [Concomitant]
     Active Substance: SIMVASTATIN
     Indication: Blood cholesterol increased
     Route: 065
  10. LOSARTAN [Concomitant]
     Active Substance: LOSARTAN
     Indication: Hypertension
     Dosage: UNKNOWN; UNKNOWN
     Route: 065
  11. UNSPECIFIED INGREDIENT [Concomitant]
     Active Substance: UNSPECIFIED INGREDIENT
     Indication: Back pain
     Dosage: UNKNOWN; UNKNOWN
     Route: 065
  12. ZOLPIDEM [Concomitant]
     Active Substance: ZOLPIDEM TARTRATE
     Indication: Sleep disorder
     Route: 065
     Dates: start: 1991

REACTIONS (23)
  - Feeling abnormal [Not Recovered/Not Resolved]
  - Tremor [Not Recovered/Not Resolved]
  - Therapeutic response increased [Unknown]
  - Dizziness [Recovered/Resolved]
  - Blood pressure decreased [Recovered/Resolved]
  - Heart rate decreased [Recovered/Resolved]
  - Hyperhidrosis [Recovering/Resolving]
  - Chills [Not Recovered/Not Resolved]
  - Paraesthesia [Recovering/Resolving]
  - Burning sensation [Recovering/Resolving]
  - Paraesthesia [Recovering/Resolving]
  - Burning sensation [Recovering/Resolving]
  - Paraesthesia [Recovering/Resolving]
  - Burning sensation [Recovering/Resolving]
  - Wrong technique in product usage process [Recovered/Resolved]
  - Product communication issue [Unknown]
  - Wrong technique in product usage process [Unknown]
  - Incorrect route of product administration [Recovered/Resolved]
  - Therapeutic response decreased [Unknown]
  - Therapeutic response unexpected [Unknown]
  - Hot flush [Recovered/Resolved]
  - Product adhesion issue [Unknown]
  - Oral administration complication [Unknown]

NARRATIVE: CASE EVENT DATE: 20210101
